FAERS Safety Report 7156108-3 (Version None)
Quarter: 2010Q4

REPORT INFORMATION
  Report Type: 
  Country: None (occurrence: None)
  Receive Date: 20101123
  Receipt Date: 20100817
  Transmission Date: 20110411
  Serious: Yes (Hospitalization)
  Sender: FDA-Public Use
  Company Number: 008354

PATIENT
  Sex: Female
  Weight: 67.5 kg

DRUGS (5)
  1. CIMZIA [Suspect]
     Indication: CROHN'S DISEASE
     Dosage: (400 MG1X/MONTH SUBCUTANEOUS)
     Route: 058
     Dates: start: 20090301
  2. LISINOPRIL AND HYDROCHLOROTHIAZIDE [Concomitant]
  3. AMLODIPINE [Concomitant]
  4. PREDNISONE [Concomitant]
  5. HYDROCODONE [Concomitant]

REACTIONS (6)
  - ABDOMINAL PAIN [None]
  - INJECTION SITE HAEMATOMA [None]
  - INJECTION SITE PAIN [None]
  - INJECTION SITE SWELLING [None]
  - INTESTINAL OBSTRUCTION [None]
  - OSTEOARTHRITIS [None]
